FAERS Safety Report 9540599 (Version 1)
Quarter: 2013Q3

REPORT INFORMATION
  Report Type: Spontaneous
  Country: US (occurrence: US)
  Receive Date: 20130920
  Receipt Date: 20130920
  Transmission Date: 20140515
  Serious: No
  Sender: FDA-Public Use
  Company Number: US-PFIZER INC-2013268925

PATIENT
  Age: 60 Year
  Sex: Female
  Weight: 68.03 kg

DRUGS (6)
  1. DIFLUCAN [Suspect]
     Dosage: UNK
     Dates: start: 20130731, end: 20130810
  2. LATUDA [Interacting]
     Indication: BIPOLAR II DISORDER
     Dosage: 20 MG, 1X/DAY AT BEDTIME
     Route: 048
     Dates: start: 20130808, end: 20130808
  3. LATUDA [Interacting]
     Dosage: 10 MG, 1X/DAY, AT BEDTIME
     Route: 048
     Dates: start: 20130809, end: 20130810
  4. LATUDA [Interacting]
     Dosage: 5 MG, 1X/DAY
     Route: 048
     Dates: start: 20130811, end: 201308
  5. ATIVAN [Concomitant]
     Dosage: UNK
     Dates: start: 2008
  6. BENADRYL [Concomitant]
     Dosage: UNK

REACTIONS (6)
  - Drug interaction [Recovered/Resolved]
  - Dyspnoea [Recovered/Resolved]
  - Chest discomfort [Recovered/Resolved]
  - Palpitations [Recovered/Resolved]
  - Psychomotor hyperactivity [Recovered/Resolved]
  - Insomnia [Recovered/Resolved]
